FAERS Safety Report 9505860 (Version 1)
Quarter: 2013Q1

REPORT INFORMATION
  Report Type: Spontaneous
  Country: US (occurrence: None)
  Receive Date: 20130219
  Receipt Date: 20130219
  Transmission Date: 20140127
  Serious: Yes (Hospitalization)
  Sender: FDA-Public Use
  Company Number: 1207USA009867

PATIENT
  Age: 50 Year
  Sex: Male

DRUGS (6)
  1. ZOCOR (SIMVASTATIN) [Suspect]
     Route: 048
  2. ACETAMINOPHEN (+) CODEINE [Suspect]
     Route: 048
  3. PRILOSEC (OMEPRAZOLE) CAPSULE [Suspect]
     Route: 048
  4. CALCIUM CARBONATE\SODIUM ALGINATE\SODIUM BICARBONATE [Suspect]
  5. ASPIRIN (ASPIRIN) [Suspect]
     Route: 048
  6. METFORMIN (METFORMIN) [Concomitant]

REACTIONS (1)
  - Abdominal pain upper [None]
